FAERS Safety Report 12833074 (Version 3)
Quarter: 2016Q4

REPORT INFORMATION
  Report Type: Spontaneous
  Country: US (occurrence: US)
  Receive Date: 20161010
  Receipt Date: 20161110
  Transmission Date: 20170207
  Serious: Yes (Other)
  Sender: FDA-Public Use
  Company Number: US-BAYER-2016-193069

PATIENT
  Sex: Male

DRUGS (1)
  1. GADAVIST [Suspect]
     Active Substance: GADOBUTROL
     Dosage: UNK UNK, ONCE

REACTIONS (4)
  - Erythema [None]
  - Nasal congestion [None]
  - Chills [None]
  - Generalised erythema [None]
